FAERS Safety Report 7482828-7 (Version None)
Quarter: 2011Q2

REPORT INFORMATION
  Report Type: 
  Country: None (occurrence: None)
  Receive Date: 20110516
  Receipt Date: 20100510
  Transmission Date: 20111010
  Serious: Yes (Hospitalization, Other)
  Sender: FDA-Public Use
  Company Number: PHHY2010DE78438

PATIENT
  Sex: Female

DRUGS (6)
  1. OMEPRAZOLE [Concomitant]
     Indication: PROPHYLAXIS
     Dosage: 1 DF, QD
     Dates: start: 20090101
  2. EXTAVIA [Suspect]
     Indication: MULTIPLE SCLEROSIS
     Dosage: 250 UG, QOD
     Route: 058
     Dates: start: 20100503
  3. LYRICA [Concomitant]
     Indication: PAIN
     Dosage: 600 MG, QD
     Dates: start: 20090101
  4. BACLOFEN [Concomitant]
     Indication: MUSCLE SPASMS
     Dosage: 15 MG, (10-15 MG)
     Dates: start: 20080101
  5. SEVREDOL [Concomitant]
     Indication: PAIN
     Dosage: AS NEEDED
     Dates: start: 20080101
  6. MORPHIUM [Concomitant]
     Indication: PAIN
     Dosage: 25 UG, EVERY THREE DAYS
     Dates: start: 20080101

REACTIONS (5)
  - PAIN [None]
  - MUSCLE SPASMS [None]
  - PNEUMONIA [None]
  - MENORRHAGIA [None]
  - NEURALGIA [None]
